FAERS Safety Report 15931602 (Version 1)
Quarter: 2019Q1

REPORT INFORMATION
  Report Type: Spontaneous
  Country: US (occurrence: US)
  Receive Date: 20190207
  Receipt Date: 20190207
  Transmission Date: 20190417
  Serious: No
  Sender: FDA-Public Use
  Company Number: None

PATIENT

DRUGS (1)
  1. MIRTAZAPINE 15MG [Suspect]
     Active Substance: MIRTAZAPINE

REACTIONS (2)
  - Hypersensitivity [None]
  - Product substitution issue [None]
